FAERS Safety Report 24025539 (Version 1)
Quarter: 2024Q2

REPORT INFORMATION
  Report Type: Spontaneous
  Country: US (occurrence: US)
  Receive Date: 20240628
  Receipt Date: 20240628
  Transmission Date: 20240716
  Serious: No
  Sender: FDA-Public Use
  Company Number: US-AMGEN-USASP2024125270

PATIENT
  Age: 79 Year
  Sex: Female

DRUGS (3)
  1. TAVNEOS [Suspect]
     Active Substance: AVACOPAN
     Indication: Product used for unknown indication
     Dosage: 30 MILLIGRAM, BID
     Route: 065
     Dates: start: 20240319
  2. TAVNEOS [Suspect]
     Active Substance: AVACOPAN
     Dosage: UNK (PATIENT CUT DOSE IN HALF)
     Route: 065
     Dates: start: 2024
  3. TAVNEOS [Suspect]
     Active Substance: AVACOPAN
     Dosage: 6 DOSAGE FORM, QD (SIX CAPSULES A DAY )
     Route: 065
     Dates: start: 2024

REACTIONS (3)
  - Rash [Unknown]
  - Pruritus [Unknown]
  - Skin lesion [Unknown]

NARRATIVE: CASE EVENT DATE: 20240101
